FAERS Safety Report 6538218-4 (Version None)
Quarter: 2010Q1

REPORT INFORMATION
  Report Type: 
  Country: None (occurrence: None)
  Receive Date: 20100114
  Receipt Date: 20100104
  Transmission Date: 20100710
  Serious: Yes (Death)
  Sender: FDA-Public Use
  Company Number: US-PFIZER INC-2010001697

PATIENT
  Age: 50 Year
  Sex: Female

DRUGS (8)
  1. SERTRALINE HCL [Suspect]
     Route: 048
  2. ALPRAZOLAM [Suspect]
     Route: 048
  3. PROPOXYPHENE HCL AND ACETAMINOPHEN [Suspect]
     Route: 048
  4. MORPHINE [Suspect]
     Route: 048
  5. MEPROBAMATE [Suspect]
     Route: 048
  6. HYDROMORPHONE [Suspect]
     Route: 048
  7. ACETAMINOPHEN AND HYDROCODONE BITARTRATE [Suspect]
     Route: 048
  8. DIPHENHYDRAMINE [Suspect]
     Route: 048

REACTIONS (3)
  - CARDIAC ARREST [None]
  - DEATH [None]
  - RESPIRATORY ARREST [None]
